FAERS Safety Report 7112245-0 (Version None)
Quarter: 2010Q4

REPORT INFORMATION
  Report Type: 
  Country: None (occurrence: None)
  Receive Date: 20101119
  Receipt Date: 20100423
  Transmission Date: 20110411
  Serious: No
  Sender: FDA-Public Use
  Company Number: A0856482A

PATIENT
  Age: 54 Year
  Sex: Male

DRUGS (4)
  1. AVODART [Suspect]
     Indication: BENIGN PROSTATIC HYPERPLASIA
     Dosage: .5MG PER DAY
     Route: 048
     Dates: start: 20100422
  2. FLOMAX [Concomitant]
  3. LOTREL [Concomitant]
  4. ANDROGEL [Concomitant]

REACTIONS (1)
  - NOCTURIA [None]
